FAERS Safety Report 4687273-5 (Version None)
Quarter: 2005Q2

REPORT INFORMATION
  Report Type: 
  Country: None (occurrence: None)
  Receive Date: 20050608
  Receipt Date: 20050317
  Transmission Date: 20051028
  Serious: Yes (Other)
  Sender: FDA-Public Use
  Company Number: 2005046083

PATIENT
  Age: 49 Year
  Sex: Male
  Weight: 74.8435 kg

DRUGS (3)
  1. CELEBREX [Suspect]
     Indication: ARTHRITIS
     Dosage: 200 MG (20 MG , 1 IN 1 D), ORAL
     Route: 048
     Dates: start: 19980101, end: 20050301
  2. CELEBREX [Suspect]
     Indication: KNEE OPERATION
     Dosage: 200 MG (20 MG , 1 IN 1 D), ORAL
     Route: 048
     Dates: start: 19980101, end: 20050301
  3. PSEUDOEPHEDRINE HCL [Suspect]
     Indication: NASAL CONGESTION
     Dosage: 60 MG (30 MG, AS NECESSARY), ORAL
     Route: 048

REACTIONS (13)
  - AGITATION [None]
  - ANXIETY [None]
  - ARTHRITIS [None]
  - CONFUSIONAL STATE [None]
  - DRUG EFFECT DECREASED [None]
  - DRUG INTERACTION [None]
  - EUPHORIC MOOD [None]
  - FEELING ABNORMAL [None]
  - IMPAIRED DRIVING ABILITY [None]
  - MENISCUS LESION [None]
  - NASAL CONGESTION [None]
  - NO REACTION ON PREVIOUS EXPOSURE TO DRUG [None]
  - THINKING ABNORMAL [None]
